FAERS Safety Report 16074991 (Version 1)
Quarter: 2019Q1

REPORT INFORMATION
  Report Type: Spontaneous
  Country: GB (occurrence: GB)
  Receive Date: 20190315
  Receipt Date: 20190315
  Transmission Date: 20190418
  Serious: Yes (Other)
  Sender: FDA-Public Use
  Company Number: GB-ALKEM LABORATORIES LIMITED-GB-ALKEM-2019-02265

PATIENT
  Age: 43 Year
  Sex: Female
  Weight: 63.5 kg

DRUGS (1)
  1. QUETIAPINE FUMARATE. [Suspect]
     Active Substance: QUETIAPINE FUMARATE
     Indication: INSOMNIA
     Dosage: UNKNOWN
     Route: 048
     Dates: start: 20181113, end: 20190207

REACTIONS (5)
  - Skin abrasion [Recovered/Resolved with Sequelae]
  - Hyporeflexia [Recovering/Resolving]
  - Crying [Recovering/Resolving]
  - Abnormal weight gain [Recovering/Resolving]
  - Obsessive thoughts [Recovering/Resolving]
